FAERS Safety Report 8134344-7 (Version None)
Quarter: 2012Q1

REPORT INFORMATION
  Report Type: 
  Country: None (occurrence: None)
  Receive Date: 20120103
  Receipt Date: 20111107
  Transmission Date: 20120608
  Serious: No
  Sender: FDA-Public Use
  Company Number: AE-2011-003319

PATIENT
  Sex: Male

DRUGS (3)
  1. PEGASYS [Concomitant]
  2. RIBAVIRIN [Concomitant]
  3. INCIVEK [Suspect]
     Dosage: ORAL
     Route: 048
     Dates: start: 20111001

REACTIONS (3)
  - RASH GENERALISED [None]
  - DYSPHAGIA [None]
  - OROPHARYNGEAL PAIN [None]
